FAERS Safety Report 9051947 (Version 2)
Quarter: 2013Q2

REPORT INFORMATION
  Report Type: Spontaneous
  Country: BR (occurrence: BR)
  Receive Date: 20130207
  Receipt Date: 20130412
  Transmission Date: 20140414
  Serious: Yes (Other)
  Sender: FDA-Public Use
  Company Number: BR-ABBOTT-13P-020-1044853-00

PATIENT
  Age: 64 Year
  Sex: Female
  Weight: 51 kg

DRUGS (7)
  1. SYNTHROID [Suspect]
     Indication: HORMONE LEVEL ABNORMAL
     Route: 048
     Dates: start: 1993
  2. SYNTHROID [Suspect]
     Indication: THYROIDECTOMY
     Route: 048
  3. SYNTHROID [Suspect]
     Route: 048
  4. SYNTHROID [Suspect]
     Route: 048
  5. SYNTHROID [Suspect]
     Route: 048
  6. SYNTHROID [Suspect]
     Route: 048
  7. UNKNOWN DRUG [Concomitant]
     Indication: HORMONE REPLACEMENT THERAPY

REACTIONS (4)
  - Thyroid neoplasm [Recovered/Resolved]
  - Thyroid disorder [Unknown]
  - Adverse event [Unknown]
  - Hypothyroidism [Unknown]
